FAERS Safety Report 13068311 (Version 8)
Quarter: 2017Q3

REPORT INFORMATION
  Report Type: Report from Study
  Country: FR (occurrence: FR)
  Receive Date: 20161228
  Receipt Date: 20170703
  Transmission Date: 20171127
  Serious: Yes (Hospitalization)
  Sender: FDA-Public Use
  Company Number: FR-ROCHE-1869344

PATIENT
  Age: 41 Year
  Sex: Female
  Weight: 54 kg

DRUGS (15)
  1. PARACETAMOL [Concomitant]
     Active Substance: ACETAMINOPHEN
     Indication: LUPUS NEPHRITIS
     Route: 048
     Dates: start: 20170505, end: 20170505
  2. LUTERAN [Concomitant]
     Active Substance: CHLORMADINONE ACETATE
     Route: 048
  3. RAMIPRIL. [Concomitant]
     Active Substance: RAMIPRIL
     Indication: LUPUS NEPHRITIS
     Route: 048
     Dates: start: 20161119
  4. OBINUTUZUMAB. [Suspect]
     Active Substance: OBINUTUZUMAB
     Indication: LUPUS NEPHRITIS
     Dosage: MOST RECENT DOSE: 01/DEC/2016?START TIME OF MOST RECENT DOSE OF OBINUTUZUMAB PRIOR TO AE ONSET: 15 1
     Route: 042
     Dates: start: 20161118
  5. LOXEN (FRANCE) [Concomitant]
     Active Substance: NICARDIPINE HYDROCHLORIDE
     Indication: LUPUS NEPHRITIS
     Route: 048
     Dates: start: 20161019
  6. MYCOPHENOLATE MOFETIL. [Suspect]
     Active Substance: MYCOPHENOLATE MOFETIL
     Indication: LUPUS NEPHRITIS
     Dosage: MOST RECENT DOSE (1000 MG) PRIOR TO EVENT: 14/DEC/2016, 04/MAY/2017
     Route: 048
     Dates: start: 20161026
  7. PREDNISONE. [Concomitant]
     Active Substance: PREDNISONE
     Indication: LUPUS NEPHRITIS
     Route: 048
     Dates: start: 20170113, end: 2017
  8. TRIATEC (FRANCE) [Concomitant]
     Active Substance: RAMIPRIL
     Indication: LUPUS NEPHRITIS
     Route: 048
     Dates: start: 200805, end: 201612
  9. PLAQUENIL [Concomitant]
     Active Substance: HYDROXYCHLOROQUINE SULFATE
     Indication: LUPUS NEPHRITIS
     Route: 048
     Dates: start: 20080520
  10. LASILIX [Concomitant]
     Active Substance: FUROSEMIDE
     Route: 048
     Dates: start: 20161216, end: 20170109
  11. METHYLPREDNISOLONE. [Suspect]
     Active Substance: METHYLPREDNISOLONE
     Indication: LUPUS NEPHRITIS
     Dosage: MOST RECENT DOSE : 01/DEC/2016, 80 MG?START TIME OF MOST RECENT DOSE OF METHYLPREDNISOLONE PRIOR TO
     Route: 042
     Dates: start: 20161118
  12. LASILIX [Concomitant]
     Active Substance: FUROSEMIDE
     Route: 048
     Dates: start: 20161104, end: 201611
  13. LASILIX [Concomitant]
     Active Substance: FUROSEMIDE
     Route: 048
     Dates: start: 201611, end: 20161201
  14. PREDNISONE. [Concomitant]
     Active Substance: PREDNISONE
     Route: 048
     Dates: start: 2017
  15. LASILIX [Concomitant]
     Active Substance: FUROSEMIDE
     Route: 048
     Dates: start: 20161202, end: 20161215

REACTIONS (1)
  - Neutropenia [Recovered/Resolved]

NARRATIVE: CASE EVENT DATE: 20161214
